FAERS Safety Report 4961944-5 (Version None)
Quarter: 2006Q2

REPORT INFORMATION
  Report Type: 
  Country: None (occurrence: None)
  Receive Date: 20060404
  Receipt Date: 20050208
  Transmission Date: 20061013
  Serious: Yes (Hospitalization, Other)
  Sender: FDA-Public Use
  Company Number: US-MERCK-0502USA01085

PATIENT
  Age: 72 Year
  Sex: Female
  Weight: 108 kg

DRUGS (1)
  1. VIOXX [Suspect]
     Indication: ARTHRITIS
     Route: 048
     Dates: start: 20010101, end: 20040901

REACTIONS (7)
  - ASTHMA [None]
  - CARDIOVASCULAR DISORDER [None]
  - HERNIA [None]
  - HERNIA REPAIR [None]
  - MYOCARDIAL INFARCTION [None]
  - RENAL DISORDER [None]
  - RESPIRATORY DISORDER [None]
